FAERS Safety Report 4838032-1 (Version None)
Quarter: 2005Q4

REPORT INFORMATION
  Report Type: 
  Country: None (occurrence: None)
  Receive Date: 20051123
  Receipt Date: 20051115
  Transmission Date: 20060501
  Serious: Yes (Hospitalization)
  Sender: FDA-Public Use
  Company Number: 2005-04481

PATIENT
  Age: 81 Year
  Sex: Female

DRUGS (4)
  1. CITALOPRAM HYDROBROMIDE [Suspect]
     Indication: DEPRESSION
     Dosage: ORAL
     Route: 048
     Dates: start: 20050101
  2. CHLORDIAZEPOXIDE/AMITRIPTYLINE HCL (UNK STRENGTH) WATSON LABORATORIES [Suspect]
     Indication: DEPRESSION
     Dosage: ORAL
     Route: 048
     Dates: start: 20050101
  3. BISOPROLOL (BISOPROLOL) [Concomitant]
  4. RAMIPRIL [Concomitant]

REACTIONS (2)
  - DRUG INTERACTION POTENTIATION [None]
  - INAPPROPRIATE ANTIDIURETIC HORMONE SECRETION [None]
